FAERS Safety Report 8756755 (Version 1)
Quarter: 2012Q4

REPORT INFORMATION
  Report Type: 
  Country: IN (occurrence: IN)
  Receive Date: 20120828
  Receipt Date: 20120828
  Transmission Date: 20130627
  Serious: Yes (Other)
  Sender: FDA-Public Use
  Company Number: IN-ASTRAZENECA-2012SE57677

PATIENT
  Age: 37 Year
  Sex: Male

DRUGS (5)
  1. BUPIVACAINE [Suspect]
     Route: 037
  2. AMLODIPINE [Interacting]
     Indication: HYPERTENSION
     Route: 048
  3. INSULIN [Concomitant]
     Indication: DIABETES MELLITUS
  4. ATENOLOL [Concomitant]
     Indication: HYPERTENSION
     Route: 048
  5. IV PRELOADING FLUID [Concomitant]

REACTIONS (2)
  - Potentiating drug interaction [Recovering/Resolving]
  - Hypotension [Recovering/Resolving]
